FAERS Safety Report 25120246 (Version 1)
Quarter: 2025Q1

REPORT INFORMATION
  Report Type: Spontaneous
  Country: GB (occurrence: GB)
  Receive Date: 20250325
  Receipt Date: 20250325
  Transmission Date: 20250409
  Serious: Yes (Other)
  Sender: DR REDDYS
  Company Number: None

PATIENT
  Sex: Male

DRUGS (2)
  1. FINASTERIDE [Suspect]
     Active Substance: FINASTERIDE
     Indication: Product used for unknown indication
  2. FINASTERIDE [Suspect]
     Active Substance: FINASTERIDE

REACTIONS (4)
  - Brain fog [Recovering/Resolving]
  - Depression [Recovering/Resolving]
  - Testicular pain [Recovering/Resolving]
  - Anxiety [Recovering/Resolving]
